FAERS Safety Report 7414567-2 (Version None)
Quarter: 2011Q2

REPORT INFORMATION
  Report Type: 
  Country: None (occurrence: None)
  Receive Date: 20110414
  Receipt Date: 20110407
  Transmission Date: 20111010
  Serious: Yes (Hospitalization, Other)
  Sender: FDA-Public Use
  Company Number: FI-BRISTOL-MYERS SQUIBB COMPANY-15661226

PATIENT
  Age: 79 Year
  Sex: Female

DRUGS (10)
  1. ETOPOPHOS FOR INJ [Suspect]
     Indication: SMALL CELL LUNG CANCER STAGE UNSPECIFIED
     Dosage: 1ST CYCLE ON DAY 1-3 (ETOPOFOS 100 MG POWDER FOR SOLUTION FOR INFUSION)
     Route: 042
     Dates: start: 20110221, end: 20110316
  2. NOVABAN [Concomitant]
     Indication: NAUSEA
     Dosage: CAPSULE
     Route: 048
     Dates: start: 20110221, end: 20110316
  3. LIPITOR [Concomitant]
     Indication: HYPERCHOLESTEROLAEMIA
     Dosage: FILM COATED TABLET
     Route: 048
  4. FURESIS [Concomitant]
     Indication: CARDIAC FAILURE
     Dosage: TABLET
     Route: 048
  5. PRIMASPAN [Concomitant]
     Indication: CORONARY ARTERY DISEASE
     Dosage: GASTRO-RESISTANT TABLET
  6. CARBOPLATIN [Suspect]
     Indication: SMALL CELL LUNG CANCER STAGE UNSPECIFIED
     Dosage: STRENGTH:10 MG/ML CONCENTRATE FOR SOLUTION FOT INJ
     Dates: start: 20110221, end: 20110315
  7. ORMOX [Concomitant]
     Indication: CORONARY ARTERY DISEASE
     Dosage: TABLET
     Route: 048
  8. ENALAPRIL MALEATE [Concomitant]
     Indication: HYPERTENSION
     Route: 048
  9. APURIN [Concomitant]
     Indication: GOUT
     Dosage: APURIN-HEXAL TABLET
     Route: 048
  10. ACEBUTOLOL HCL [Concomitant]
     Indication: HYPERTENSION
     Dosage: DIASECTRAL FILM COATED TABLET
     Route: 048

REACTIONS (1)
  - CORONARY ARTERY DISEASE [None]
